FAERS Safety Report 7208620-6 (Version None)
Quarter: 2011Q1

REPORT INFORMATION
  Report Type: 
  Country: None (occurrence: None)
  Receive Date: 20110104
  Receipt Date: 20101221
  Transmission Date: 20110831
  Serious: Yes (Other)
  Sender: FDA-Public Use
  Company Number: GB-JNJFOC-20090701709

PATIENT
  Sex: Female

DRUGS (2)
  1. PARACETAMOL [Suspect]
     Route: 065
  2. PARACETAMOL [Suspect]
     Indication: ILL-DEFINED DISORDER
     Dosage: 15 TO 20 GRAMS
     Route: 065

REACTIONS (4)
  - ABORTION INDUCED [None]
  - OVERDOSE [None]
  - DRUG EXPOSURE DURING PREGNANCY [None]
  - UNEVALUABLE EVENT [None]
